FAERS Safety Report 4596559-4 (Version None)
Quarter: 2005Q1

REPORT INFORMATION
  Report Type: 
  Country: None (occurrence: None)
  Receive Date: 20050228
  Receipt Date: 20050221
  Transmission Date: 20050727
  Serious: Yes (Life-Threatening)
  Sender: FDA-Public Use
  Company Number: 2005-02-1256

PATIENT
  Age: 75 Year
  Sex: Female
  Weight: 66 kg

DRUGS (1)
  1. AERIUS                (DESLORATADINE) [Suspect]
     Indication: RHINITIS
     Dosage: 5 MG QD ORAL
     Route: 048
     Dates: start: 20041111, end: 20041112

REACTIONS (3)
  - EYE HAEMORRHAGE [None]
  - PALPITATIONS [None]
  - PYREXIA [None]
